FAERS Safety Report 5671611-0 (Version None)
Quarter: 2008Q1

REPORT INFORMATION
  Report Type: 
  Country: None (occurrence: None)
  Receive Date: 20080313
  Receipt Date: 20080310
  Transmission Date: 20080703
  Serious: Yes (Hospitalization)
  Sender: FDA-Public Use
  Company Number: 2007BI020994

PATIENT
  Age: 37 Year
  Sex: Female

DRUGS (5)
  1. TYSABRI [Suspect]
     Indication: MULTIPLE SCLEROSIS
     Dosage: 300 MG; QM; IV
     Route: 042
     Dates: start: 20070918, end: 20070918
  2. COPIKLON [Concomitant]
  3. MOLIPECT [Concomitant]
  4. ALVEDON [Concomitant]
  5. REBIF [Concomitant]

REACTIONS (2)
  - ARTHRALGIA [None]
  - ARTHRITIS BACTERIAL [None]
